FAERS Safety Report 20393500 (Version 1)
Quarter: 2022Q1

REPORT INFORMATION
  Report Type: Spontaneous
  Country: JP (occurrence: JP)
  Receive Date: 20220128
  Receipt Date: 20220128
  Transmission Date: 20220423
  Serious: Yes (Other)
  Sender: FDA-Public Use
  Company Number: JP-HQ SPECIALTY-JP-2022INT000034

PATIENT

DRUGS (4)
  1. CISPLATIN [Suspect]
     Active Substance: CISPLATIN
     Indication: Squamous cell carcinoma of the oral cavity
     Dosage: 100 MG/M2, INFUSED INTO EACH FEEDER AT 0.1 TO 0.5 ML/SECOND
     Route: 013
  2. SODIUM BICARBONATE [Concomitant]
     Active Substance: SODIUM BICARBONATE
     Indication: Squamous cell carcinoma of the oral cavity
     Dosage: 20 ML, INFUSED INTO EACH FEEDER AT 0.1 TO 0.4 ML/SECOND
     Route: 013
  3. SODIUM THIOSULFATE [Concomitant]
     Active Substance: SODIUM THIOSULFATE
     Indication: Squamous cell carcinoma of the oral cavity
     Dosage: 20 G/M2, 90 TO 360 ML/SECOND VIA THE PICC
     Route: 013
  4. RADIATION THERAPY [Concomitant]
     Active Substance: RADIATION THERAPY
     Indication: Squamous cell carcinoma of the oral cavity
     Dosage: STARTED ON DAY 1 WITH PHOTON BEAM ENERGY OF 6 OR 10 MW AND 2 GY/FRACTION/DAY
     Route: 013

REACTIONS (1)
  - Cardiac failure acute [Unknown]
